FAERS Safety Report 8275038-7 (Version None)
Quarter: 2012Q2

REPORT INFORMATION
  Report Type: 
  Country: None (occurrence: None)
  Receive Date: 20120411
  Receipt Date: 20120405
  Transmission Date: 20120825
  Serious: Yes (Other)
  Sender: FDA-Public Use
  Company Number: CHPA2012US005251

PATIENT
  Age: 44 Year
  Sex: Female

DRUGS (2)
  1. PREVACID 24 HR [Suspect]
     Indication: GASTROOESOPHAGEAL REFLUX DISEASE
     Dosage: 15 OR 30MG A DAY
     Route: 048
  2. ALLEGRA [Concomitant]
     Indication: HYPERSENSITIVITY

REACTIONS (6)
  - DISEASE RECURRENCE [None]
  - WRONG TECHNIQUE IN DRUG USAGE PROCESS [None]
  - OVERDOSE [None]
  - UTERINE DISORDER [None]
  - DRUG INEFFECTIVE FOR UNAPPROVED INDICATION [None]
  - INCORRECT DRUG ADMINISTRATION DURATION [None]
